FAERS Safety Report 7318363-6 (Version None)
Quarter: 2011Q1

REPORT INFORMATION
  Report Type: 
  Country: None (occurrence: None)
  Receive Date: 20110217
  Receipt Date: 20110217
  Transmission Date: 20110831
  Serious: No
  Sender: FDA-Public Use
  Company Number: None

PATIENT
  Sex: Female
  Weight: 66.2252 kg

DRUGS (2)
  1. BUPROPION 150MG [Suspect]
     Indication: ANXIETY
     Dosage: 1 TABLED DAILY PO
     Route: 048
     Dates: start: 20080901, end: 20090211
  2. BUPROPION 150MG [Suspect]
     Indication: DEPRESSION
     Dosage: 1 TABLED DAILY PO
     Route: 048
     Dates: start: 20080901, end: 20090211

REACTIONS (4)
  - DEPRESSION [None]
  - PRODUCT SUBSTITUTION ISSUE [None]
  - CRYING [None]
  - MORBID THOUGHTS [None]
